FAERS Safety Report 9468178 (Version 3)
Quarter: 2013Q4

REPORT INFORMATION
  Report Type: Spontaneous
  Country: US (occurrence: None)
  Receive Date: 20130816
  Receipt Date: 20131226
  Transmission Date: 20140711
  Serious: Yes (Death, Hospitalization)
  Sender: FDA-Public Use
  Company Number: 2013-349

PATIENT
  Age: 54 Year
  Sex: Female

DRUGS (9)
  1. FAZACLO [Suspect]
     Indication: SCHIZOAFFECTIVE DISORDER
     Route: 048
     Dates: start: 20070611, end: 20130623
  2. BENZOTRIPINE MESILATE (BENZOTRIPINE MESILATE) [Concomitant]
  3. LEVETIRACETAM (LEVETIRACETAM) [Concomitant]
  4. LEVOTHYROXINE SODIUM (LEVOTHYROXINE SODIUM) [Concomitant]
  5. SIMVASTATIN (SIMVASTATIN) [Concomitant]
  6. THORAZINE (CHLORPROMAZINE HYDROCHLORIDE) [Concomitant]
  7. AMANTADINE (AMANTADINE HYDROCHLORIDE) [Concomitant]
  8. SEROQUEL (QUETIAPINE FUMARATE) [Concomitant]
  9. LITHIUM CARBONATE (LITHIUM CARBONATE) [Concomitant]

REACTIONS (9)
  - Death [None]
  - Toxicity to various agents [None]
  - Cardiopulmonary failure [None]
  - Mania [None]
  - Acute endocarditis [None]
  - Mania [None]
  - Pulmonary congestion [None]
  - Pulmonary oedema [None]
  - Myocardial fibrosis [None]
